FAERS Safety Report 12748166 (Version 5)
Quarter: 2017Q3

REPORT INFORMATION
  Report Type: Report from Study
  Country: DE (occurrence: DE)
  Receive Date: 20160915
  Receipt Date: 20170706
  Transmission Date: 20171127
  Serious: Yes (Other)
  Sender: FDA-Public Use
  Company Number: PHHY2016DE125028

PATIENT
  Sex: Female

DRUGS (22)
  1. METYPRED//METHYLPREDNISOLONE [Concomitant]
     Active Substance: METHYLPREDNISOLONE
     Dosage: 1000 MG, QW3
     Route: 042
     Dates: start: 20151019, end: 20151021
  2. DEKRISTOL [Concomitant]
     Active Substance: CHOLECALCIFEROL
     Indication: PRODUCT USED FOR UNKNOWN INDICATION
     Dosage: 20000 MF ONCE PER WEEK
     Route: 065
     Dates: start: 20130108
  3. ALPRAZOLAM. [Concomitant]
     Active Substance: ALPRAZOLAM
     Indication: PRODUCT USED FOR UNKNOWN INDICATION
     Dosage: 0.5 MG, QD
     Route: 065
     Dates: start: 20170307
  4. ZOPICLONE [Concomitant]
     Active Substance: ZOPICLONE
     Dosage: 7.5 MG, QD
     Route: 048
     Dates: start: 20140929, end: 20141001
  5. TRIMIPRAMIN [Concomitant]
     Active Substance: TRIMIPRAMINE MALEATE
     Indication: PRODUCT USED FOR UNKNOWN INDICATION
     Dosage: 50 MG, QD
     Route: 065
     Dates: start: 20161102
  6. BACLOFEN. [Concomitant]
     Active Substance: BACLOFEN
     Indication: MUSCLE SPASTICITY
     Dosage: 12.5 MG, PRN
     Route: 048
  7. ACIC [Concomitant]
     Active Substance: ACYCLOVIR
     Indication: MULTIPLE SCLEROSIS RELAPSE
     Dosage: 200 MG, BID
     Route: 048
     Dates: start: 20150504, end: 20150506
  8. OMEBETA [Concomitant]
     Dosage: 20 MG, QD
     Route: 048
     Dates: start: 20151019, end: 20151021
  9. OMEBETA [Concomitant]
     Indication: PROPHYLAXIS
     Dosage: 20 MG, QD
     Route: 048
     Dates: start: 20140520, end: 20140522
  10. STANGYL [Concomitant]
     Active Substance: TRIMIPRAMINE MALEATE
     Indication: SLEEP DISORDER
     Dosage: 20 DRP, PRN
     Route: 048
  11. METYPRED//METHYLPREDNISOLONE [Concomitant]
     Active Substance: METHYLPREDNISOLONE
     Dosage: 1000 MG, QW3
     Route: 042
     Dates: start: 20150504, end: 20150506
  12. ZOPICLONE [Concomitant]
     Active Substance: ZOPICLONE
     Indication: SLEEP DISORDER
     Dosage: 7.5 MG, QD
     Route: 048
     Dates: start: 20140520, end: 20140522
  13. METYPRED//METHYLPREDNISOLONE [Concomitant]
     Active Substance: METHYLPREDNISOLONE
     Dosage: 1000 MG, QW3
     Route: 042
     Dates: start: 20130513, end: 20130515
  14. METYPRED//METHYLPREDNISOLONE [Concomitant]
     Active Substance: METHYLPREDNISOLONE
     Dosage: 1000 MG, QW3
     Route: 042
     Dates: start: 20140520, end: 20140522
  15. METYPRED//METHYLPREDNISOLONE [Concomitant]
     Active Substance: METHYLPREDNISOLONE
     Dosage: 1000 MG, QW3
     Route: 042
     Dates: start: 20140929, end: 20141001
  16. ACIC [Concomitant]
     Active Substance: ACYCLOVIR
     Indication: INFECTION PROPHYLAXIS
     Dosage: 200 MG, BID
     Route: 048
     Dates: start: 20131104, end: 20131116
  17. GILENYA [Suspect]
     Active Substance: FINGOLIMOD HYDROCHLORIDE
     Indication: MULTIPLE SCLEROSIS
     Dosage: 0.5 MG, QD
     Route: 048
     Dates: start: 20121113
  18. METYPRED//METHYLPREDNISOLONE [Concomitant]
     Active Substance: METHYLPREDNISOLONE
     Indication: MULTIPLE SCLEROSIS RELAPSE
     Dosage: 1000 MG, QW3
     Route: 042
     Dates: start: 20130108, end: 20130110
  19. METYPRED//METHYLPREDNISOLONE [Concomitant]
     Active Substance: METHYLPREDNISOLONE
     Dosage: 2000 MG, QW
     Route: 042
     Dates: start: 20131104, end: 20131104
  20. METYPRED//METHYLPREDNISOLONE [Concomitant]
     Active Substance: METHYLPREDNISOLONE
     Dosage: 1000 MG, QW3
     Route: 042
     Dates: start: 20140203, end: 20140205
  21. METYPRED//METHYLPREDNISOLONE [Concomitant]
     Active Substance: METHYLPREDNISOLONE
     Dosage: 1000 MG, QW3
     Route: 042
     Dates: start: 20150126, end: 20150128
  22. CORTISONE [Concomitant]
     Active Substance: CORTISONE\HYDROCORTISONE
     Indication: PRODUCT USED FOR UNKNOWN INDICATION
     Dosage: UNK
     Route: 065

REACTIONS (3)
  - Mental disorder [Not Recovered/Not Resolved]
  - Suicide attempt [Recovered/Resolved]
  - Depression [Not Recovered/Not Resolved]

NARRATIVE: CASE EVENT DATE: 20160619
